FAERS Safety Report 7539470-9 (Version None)
Quarter: 2011Q2

REPORT INFORMATION
  Report Type: 
  Country: None (occurrence: None)
  Receive Date: 20110610
  Receipt Date: 20110602
  Transmission Date: 20111010
  Serious: Yes (Death, Hospitalization)
  Sender: FDA-Public Use
  Company Number: JP-BAYER-2011-041680

PATIENT
  Age: 78 Year
  Sex: Female

DRUGS (1)
  1. NEXAVAR [Suspect]
     Indication: RENAL CELL CARCINOMA
     Dosage: 400 MG, BID
     Route: 048
     Dates: start: 20110507, end: 20110514

REACTIONS (8)
  - DISSEMINATED INTRAVASCULAR COAGULATION [None]
  - MALAISE [None]
  - PARAESTHESIA [None]
  - SEPSIS [None]
  - DECREASED APPETITE [None]
  - FLANK PAIN [None]
  - DYSPNOEA [None]
  - CHOLECYSTITIS [None]
